FAERS Safety Report 9007511 (Version 2)
Quarter: 2013Q1

REPORT INFORMATION
  Report Type: Spontaneous
  Country: US (occurrence: US)
  Receive Date: 20130111
  Receipt Date: 20130304
  Transmission Date: 20140127
  Serious: Yes (Hospitalization)
  Sender: FDA-Public Use
  Company Number: US-ELI_LILLY_AND_COMPANY-US201301000353

PATIENT
  Age: 55 None
  Sex: Female
  Weight: 124.72 kg

DRUGS (3)
  1. BYETTA [Suspect]
     Indication: TYPE 2 DIABETES MELLITUS
     Dosage: 5 UG, BID
     Route: 058
  2. BYETTA [Suspect]
     Dosage: 10 UG, UNK
     Route: 058
     Dates: end: 201207
  3. BYETTA [Suspect]
     Dosage: 10 UG, BID
     Route: 058
     Dates: start: 201207

REACTIONS (5)
  - Blister infected [Unknown]
  - Wound drainage [Not Recovered/Not Resolved]
  - Increased appetite [Recovered/Resolved]
  - Abdominal pain [Recovered/Resolved]
  - Blood blister [Recovered/Resolved]
